FAERS Safety Report 7377876-1 (Version None)
Quarter: 2011Q1

REPORT INFORMATION
  Report Type: 
  Country: None (occurrence: None)
  Receive Date: 20110328
  Receipt Date: 20110317
  Transmission Date: 20110831
  Serious: Yes (Hospitalization)
  Sender: FDA-Public Use
  Company Number: CA-NOVOPROD-325162

PATIENT
  Sex: Female
  Weight: 120 kg

DRUGS (6)
  1. COZAAR [Concomitant]
     Indication: HYPERTENSION
  2. METFORMIN [Concomitant]
     Dosage: (1000MG X 2)
  3. VICTOZA [Suspect]
     Indication: PRODUCT USED FOR UNKNOWN INDICATION
     Dosage: 0.6 MG, QD
     Route: 058
     Dates: start: 20110201, end: 20110201
  4. LIPITOR [Concomitant]
     Indication: HYPERCHOLESTEROLAEMIA
  5. VICTOZA [Suspect]
     Dosage: 1.2 MG, QD
     Route: 058
     Dates: start: 20110206, end: 20110207
  6. GLUCONORM [Concomitant]
     Dosage: 2MG X 3

REACTIONS (3)
  - CHEST PAIN [None]
  - CHEST DISCOMFORT [None]
  - FEELING ABNORMAL [None]
